FAERS Safety Report 7438340-4 (Version None)
Quarter: 2011Q2

REPORT INFORMATION
  Report Type: 
  Country: None (occurrence: None)
  Receive Date: 20110426
  Receipt Date: 20110415
  Transmission Date: 20111010
  Serious: Yes (Hospitalization)
  Sender: FDA-Public Use
  Company Number: GB-JNJFOC-20110407071

PATIENT
  Age: 50 Year
  Sex: Female

DRUGS (6)
  1. PHENOBARBITAL [Concomitant]
     Indication: EPILEPSY
  2. FLUCLOXACILLIN [Interacting]
     Indication: STAPHYLOCOCCAL INFECTION
  3. ACETAMINOPHEN [Suspect]
     Route: 065
  4. ACETAMINOPHEN [Suspect]
     Indication: PAIN
     Route: 065
  5. CARBAMAZEPINE [Concomitant]
     Indication: EPILEPSY
  6. PHENYTOIN [Concomitant]
     Indication: EPILEPSY

REACTIONS (3)
  - PYROGLUTAMATE INCREASED [None]
  - DRUG INTERACTION [None]
  - METABOLIC ACIDOSIS [None]
